FAERS Safety Report 8375583-X (Version None)
Quarter: 2012Q1

REPORT INFORMATION
  Report Type: 
  Country: None (occurrence: None)
  Receive Date: 20120323
  Receipt Date: 20110523
  Transmission Date: 20120608
  Serious: Yes (Other)
  Sender: FDA-Public Use
  Company Number: 163-21880-11012625

PATIENT
  Age: 51 Year
  Sex: Female
  Weight: 53.5244 kg

DRUGS (21)
  1. REVLIMID [Suspect]
     Indication: MULTIPLE MYELOMA
     Dosage: 15 MG, 1 IN 1 D, PO
     Route: 048
     Dates: start: 20101103
  2. ALA (PARAFFIN) [Concomitant]
  3. SENOKOT (SENNA FRUIT) (TABLETS) [Concomitant]
  4. FOLATE (FOLIC ACID) (TABLETS) [Concomitant]
  5. OXYCODONE HCL [Concomitant]
  6. BIOTIN (BIOTIN) (TABLETS) [Concomitant]
  7. PEPCID (FAMOTIDINE) (TABLETS) [Concomitant]
  8. OMEPRAZOLE [Concomitant]
  9. TOCOPHEROL CONCENTRATE CAP [Suspect]
     Indication: PRODUCT USED FOR UNKNOWN INDICATION
     Dosage: 400 IU, 3 X PER WEEK, PO
     Route: 048
  10. B COMPLEX ELX [Concomitant]
  11. VITAMIN B-12 (CYANOCOBALAMIN) (TABLETS) [Concomitant]
  12. CALCIUM CARBONATE [Concomitant]
  13. MULTIVITAMINS (MULTIVITAMINS) (TABLETS) [Concomitant]
  14. ASA (ACETYLSALICYLIC ACID) (TABLETS) [Concomitant]
  15. LEVOTHYROXINE (LEVOTHYROXINE) (TABLETS) [Concomitant]
  16. CYMBALTA [Concomitant]
  17. FISH OIL (FISH OIL) [Concomitant]
  18. LEVAQUIN [Concomitant]
  19. VERAPAMIL (VERAPAMIL) (TABLETS) [Concomitant]
  20. COLACE (DOCUSATE SODIUM) (CAPSULES) [Concomitant]
  21. LOVENOX [Concomitant]

REACTIONS (3)
  - WHITE BLOOD CELL COUNT DECREASED [None]
  - NEUTROPENIA [None]
  - MUSCULOSKELETAL CHEST PAIN [None]
